FAERS Safety Report 6704772-2 (Version None)
Quarter: 2010Q2

REPORT INFORMATION
  Report Type: 
  Country: None (occurrence: None)
  Receive Date: 20100430
  Receipt Date: 20100302
  Transmission Date: 20101027
  Serious: No
  Sender: FDA-Public Use
  Company Number: US-ASTRAZENECA-2010SE08970

PATIENT
  Age: 64 Year
  Sex: Female

DRUGS (5)
  1. NEXIUM [Suspect]
     Route: 048
     Dates: start: 20070101
  2. INSULIN [Concomitant]
  3. ACTOS [Concomitant]
  4. LOVASTATIN [Concomitant]
  5. NORVASC [Concomitant]

REACTIONS (2)
  - ALOPECIA [None]
  - BLOOD IRON DECREASED [None]
